FAERS Safety Report 21361564 (Version 3)
Quarter: 2025Q3

REPORT INFORMATION
  Report Type: Spontaneous
  Country: US (occurrence: US)
  Receive Date: 20220921
  Receipt Date: 20250710
  Transmission Date: 20251020
  Serious: Yes (Hospitalization, Other)
  Sender: JAZZ
  Company Number: US-GW PHARMA-2022-US-029922

PATIENT
  Sex: Female

DRUGS (1)
  1. EPIDIOLEX [Suspect]
     Active Substance: CANNABIDIOL
     Indication: Product used for unknown indication

REACTIONS (6)
  - Status epilepticus [Unknown]
  - Autism spectrum disorder [Unknown]
  - Seizure [Unknown]
  - Hospitalisation [Unknown]
  - Crying [Unknown]
  - Speech disorder [Unknown]
